FAERS Safety Report 8256046-9 (Version None)
Quarter: 2012Q2

REPORT INFORMATION
  Report Type: 
  Country: None (occurrence: None)
  Receive Date: 20120403
  Receipt Date: 20120329
  Transmission Date: 20120825
  Serious: Yes (Death)
  Sender: FDA-Public Use
  Company Number: LB-SANOFI-AVENTIS-2012SA018083

PATIENT
  Age: 72 Year
  Sex: Male
  Weight: 73.5 kg

DRUGS (16)
  1. FLUOROURACIL [Suspect]
     Route: 042
     Dates: start: 20120220, end: 20120220
  2. FLUOROURACIL [Suspect]
     Route: 042
     Dates: start: 20120305, end: 20120305
  3. ROSUVASTATIN [Concomitant]
  4. PAROXETINE HCL [Concomitant]
  5. OXALIPLATIN [Suspect]
     Route: 042
     Dates: start: 20120220, end: 20120220
  6. LEUCOVORIN CALCIUM [Suspect]
     Route: 042
     Dates: start: 20120220, end: 20120220
  7. MICARDIS [Concomitant]
  8. LEUCOVORIN CALCIUM [Suspect]
     Route: 042
     Dates: start: 20120305, end: 20120305
  9. DEXAMETHASONE [Concomitant]
  10. OXALIPLATIN [Suspect]
     Route: 042
     Dates: start: 20120206, end: 20120206
  11. FLUOROURACIL [Suspect]
     Route: 042
     Dates: start: 20120206, end: 20120206
  12. LEUCOVORIN CALCIUM [Suspect]
     Route: 042
     Dates: start: 20120206, end: 20120206
  13. ASPIRIN [Concomitant]
  14. BISOPROLOL FUMARATE [Concomitant]
  15. KYTRIL [Concomitant]
  16. OXALIPLATIN [Suspect]
     Route: 042
     Dates: start: 20120305, end: 20120305

REACTIONS (1)
  - SUDDEN DEATH [None]
